FAERS Safety Report 9113549 (Version 1)
Quarter: 2013Q1

REPORT INFORMATION
  Report Type: Report from Study
  Country: US (occurrence: US)
  Receive Date: 20130129
  Receipt Date: 20130129
  Transmission Date: 20140127
  Serious: No
  Sender: FDA-Public Use
  Company Number: US-ABBOTT-12P-163-0940029-00

PATIENT
  Age: 24 Year
  Sex: Female

DRUGS (11)
  1. HUMIRA 40 MG/0.8 ML PEN [Suspect]
     Indication: CROHN^S DISEASE
     Dates: start: 20120419
  2. PROZAC [Concomitant]
     Indication: OBSESSIVE-COMPULSIVE DISORDER
  3. MERCAPTOPURINE [Concomitant]
     Indication: CROHN^S DISEASE
  4. AVIANE [Concomitant]
     Indication: CONTRACEPTION
  5. MAXALT-MLT [Concomitant]
     Indication: MIGRAINE
     Dosage: 1 TAB DAILY AS NEEDED
  6. CALCIUM + VITAMIN D [Concomitant]
     Indication: PRODUCT USED FOR UNKNOWN INDICATION
     Dosage: CALCIUM-600MG/VITAMIN D-4000 UNITS COMBINATION 1 TAB TWICE DAILY
  7. IRON [Concomitant]
     Indication: PRODUCT USED FOR UNKNOWN INDICATION
  8. MULTIVITAMIN [Concomitant]
     Indication: PRODUCT USED FOR UNKNOWN INDICATION
  9. B-COMPLEX + VITAMIN C [Concomitant]
     Indication: PRODUCT USED FOR UNKNOWN INDICATION
  10. VITAMIN C [Concomitant]
     Indication: PRODUCT USED FOR UNKNOWN INDICATION
  11. PROBIOTIC [Concomitant]
     Indication: PRODUCT USED FOR UNKNOWN INDICATION

REACTIONS (1)
  - Injection site bruising [Recovered/Resolved]
